FAERS Safety Report 16135745 (Version 1)
Quarter: 2019Q1

REPORT INFORMATION
  Report Type: Spontaneous
  Country: US (occurrence: US)
  Receive Date: 20190329
  Receipt Date: 20190329
  Transmission Date: 20190418
  Serious: No
  Sender: FDA-Public Use
  Company Number: US-EMD SERONO-9081075

PATIENT
  Age: 60 Year
  Sex: Female

DRUGS (1)
  1. REBIF [Suspect]
     Active Substance: INTERFERON BETA-1A
     Indication: MULTIPLE SCLEROSIS
     Route: 058
     Dates: start: 201608

REACTIONS (8)
  - Pain in extremity [Unknown]
  - Thyroid disorder [Unknown]
  - Weight increased [Unknown]
  - Limb discomfort [Not Recovered/Not Resolved]
  - Insurance issue [Unknown]
  - Inappropriate schedule of product administration [Unknown]
  - Back disorder [Unknown]
  - Irritability [Unknown]

NARRATIVE: CASE EVENT DATE: 201903
